FAERS Safety Report 24448024 (Version 2)
Quarter: 2024Q4

REPORT INFORMATION
  Report Type: Spontaneous
  Country: CZ (occurrence: CZ)
  Receive Date: 20241016
  Receipt Date: 20241129
  Transmission Date: 20250115
  Serious: Yes (Other)
  Sender: TEVA
  Company Number: CZ-TEVA-VS-3252047

PATIENT
  Age: 75 Year
  Sex: Male

DRUGS (4)
  1. PEMETREXED [Suspect]
     Active Substance: PEMETREXED
     Indication: Neoplasm
     Dosage: 4 CYCLES IN COMBINATION WITH CARBOPLATIN AND BEVACIZUMAB AS FIRST-LINE CHEMOTHERAPY
     Route: 065
     Dates: start: 202107, end: 202109
  2. ERLOTINIB [Suspect]
     Active Substance: ERLOTINIB
     Indication: Neoplasm
     Dosage: FOURTH-LINE CHEMOTHERAPY
     Route: 065
     Dates: start: 2022, end: 2022
  3. CARBOPLATIN [Suspect]
     Active Substance: CARBOPLATIN
     Indication: Neoplasm
     Dosage: 4 CYCLES IN COMBINATION WITH PEMETREXED AND BEVACIZUMAB AS FIRST-LINE CHEMOTHERAPY
     Route: 065
     Dates: start: 202107, end: 202109
  4. BEVACIZUMAB [Suspect]
     Active Substance: BEVACIZUMAB
     Indication: Neoplasm
     Dosage: 4 CYCLES IN COMBINATION WITH CARBOPLATIN AND CARBOPLATIN AS FIRST-LINE CHEMOTHERAPY
     Route: 065
     Dates: start: 202107, end: 202109

REACTIONS (3)
  - Neutropenia [Unknown]
  - Rash [Unknown]
  - Diarrhoea [Unknown]

NARRATIVE: CASE EVENT DATE: 20210101
